FAERS Safety Report 4867037-X (Version None)
Quarter: 2005Q4

REPORT INFORMATION
  Report Type: 
  Country: None (occurrence: None)
  Receive Date: 20051220
  Receipt Date: 20020310
  Transmission Date: 20060501
  Serious: Yes (Death, Hospitalization)
  Sender: FDA-Public Use
  Company Number: HQ1576007OCT1999

PATIENT
  Age: 65 Year
  Sex: Female

DRUGS (1)
  1. GEMTUZUMAB OZOGAMICIN [Suspect]
     Indication: ACUTE MYELOID LEUKAEMIA
     Dosage: 9 MG/M (2) INTRAVENOUS
     Route: 042
     Dates: start: 19990819, end: 19990819

REACTIONS (6)
  - ACUTE RESPIRATORY DISTRESS SYNDROME [None]
  - ANXIETY [None]
  - CONSTIPATION [None]
  - EYE HAEMORRHAGE [None]
  - FLATULENCE [None]
  - OLIGURIA [None]
